FAERS Safety Report 9263317 (Version 1)
Quarter: 2013Q2

REPORT INFORMATION
  Report Type: Spontaneous
  Country: US (occurrence: US)
  Receive Date: 20130430
  Receipt Date: 20130430
  Transmission Date: 20140414
  Serious: No
  Sender: FDA-Public Use
  Company Number: US-ABBOTT-12P-163-1003182-00

PATIENT
  Age: 62 Year
  Sex: Female
  Weight: 66.74 kg

DRUGS (2)
  1. CREON [Suspect]
     Indication: PANCREATIC INSUFFICIENCY
     Dates: start: 201209
  2. BYETTA [Suspect]
     Indication: BLOOD GLUCOSE ABNORMAL
     Dates: start: 201209

REACTIONS (1)
  - Rash pruritic [Unknown]
